FAERS Safety Report 4627051-6 (Version None)
Quarter: 2005Q1

REPORT INFORMATION
  Report Type: 
  Country: None (occurrence: None)
  Receive Date: 20050331
  Receipt Date: 20050316
  Transmission Date: 20050727
  Serious: Yes (Life-Threatening, Hospitalization, Other)
  Sender: FDA-Public Use
  Company Number: 2005042945

PATIENT
  Sex: Female

DRUGS (4)
  1. BEXTRA [Suspect]
     Indication: ILL-DEFINED DISORDER
     Dates: end: 20050101
  2. CELEBREX [Suspect]
     Indication: ILL-DEFINED DISORDER
     Dosage: (100 MG)
  3. ESOMEPRAZOLE (ESOMEPRAZOLE) [Concomitant]
  4. GLUCOSAMINE WITH MSM (GLUCOSAMINE, METHYLSULFONYLMETHANE) [Concomitant]

REACTIONS (8)
  - ALCOHOL USE [None]
  - ASTHENIA [None]
  - DEATH OF SIBLING [None]
  - DECREASED ACTIVITY [None]
  - DRUG INEFFECTIVE [None]
  - HAEMORRHAGE [None]
  - PARALYSIS [None]
  - ULCER [None]
